FAERS Safety Report 17921774 (Version 1)
Quarter: 2020Q2

REPORT INFORMATION
  Report Type: Spontaneous
  Country: US (occurrence: US)
  Receive Date: 20200619
  Receipt Date: 20200619
  Transmission Date: 20200714
  Serious: Yes (Hospitalization)
  Sender: FDA-Public Use
  Company Number: None

PATIENT
  Age: 38 Year
  Sex: Male

DRUGS (6)
  1. OSELTAMIVIR [Concomitant]
     Active Substance: OSELTAMIVIR
  2. PROCHLORPER [Concomitant]
  3. ONDANSETRON [Concomitant]
     Active Substance: ONDANSETRON
  4. HUMIRA [Suspect]
     Active Substance: ADALIMUMAB
     Indication: CROHN^S DISEASE
     Dosage: ?          OTHER DOSE:0.8MG (1 SYR);?
     Route: 030
     Dates: start: 20180119
  5. ALLOPURINOL. [Concomitant]
     Active Substance: ALLOPURINOL
  6. CAPECITABINE. [Concomitant]
     Active Substance: CAPECITABINE

REACTIONS (2)
  - Therapy interrupted [None]
  - Intestinal mass [None]

NARRATIVE: CASE EVENT DATE: 20191021
